FAERS Safety Report 22140242 (Version 1)
Quarter: 2023Q1

REPORT INFORMATION
  Report Type: Spontaneous
  Country: JP (occurrence: JP)
  Receive Date: 20230327
  Receipt Date: 20230327
  Transmission Date: 20230418
  Serious: Yes (Death, Other)
  Sender: FDA-Public Use
  Company Number: JP-GSKJP-JP2022JPN165065AA

PATIENT

DRUGS (13)
  1. DAPRODUSTAT [Suspect]
     Active Substance: DAPRODUSTAT
     Indication: Chronic kidney disease
     Dosage: 2 MG
     Route: 048
     Dates: start: 20220926, end: 20221016
  2. DAPRODUSTAT [Suspect]
     Active Substance: DAPRODUSTAT
     Indication: Renal failure
  3. DAPRODUSTAT [Suspect]
     Active Substance: DAPRODUSTAT
     Indication: Nephrogenic anaemia
  4. MICAMLO COMBINATION TABLETS AP [Concomitant]
     Indication: Hypertension
     Dosage: 1 DF, BID
     Route: 048
     Dates: end: 20221016
  5. SODIUM FERROUS CITRATE [Concomitant]
     Active Substance: SODIUM FERROUS CITRATE
     Indication: Anaemia
     Dosage: 100 MG, QD
     Route: 048
     Dates: end: 20221016
  6. ROXADUSTAT [Concomitant]
     Active Substance: ROXADUSTAT
     Indication: Nephrogenic anaemia
     Dosage: 100 MG, 3 TIMES A WEEK
     Route: 048
     Dates: end: 20220807
  7. LINAGLIPTIN [Concomitant]
     Active Substance: LINAGLIPTIN
     Indication: Diabetes mellitus
     Dosage: 5 MG, QD
     Route: 048
     Dates: end: 20221016
  8. ALFAROL [Concomitant]
     Active Substance: ALFACALCIDOL
     Indication: Renal disorder
     Dosage: 0.5 ?G, QD
     Route: 048
     Dates: end: 20221016
  9. TRICHLORMETHIAZIDE [Concomitant]
     Active Substance: TRICHLORMETHIAZIDE
     Indication: Cardiac failure
     Dosage: 2 MG, BID
     Route: 048
     Dates: end: 20221016
  10. AZOSEMIDE [Concomitant]
     Active Substance: AZOSEMIDE
     Indication: Cardiac failure
     Dosage: 30 MG, QD
     Route: 048
     Dates: start: 20220822, end: 20221016
  11. SODIUM BICARBONATE [Concomitant]
     Active Substance: SODIUM BICARBONATE
     Indication: Renal disorder
     Dosage: 1 G, BID
     Route: 048
     Dates: start: 20220822, end: 20221016
  12. NEXIUM [Concomitant]
     Active Substance: ESOMEPRAZOLE MAGNESIUM
     Indication: Gastrooesophageal reflux disease
     Dosage: 10 MG, QD
     Route: 048
     Dates: start: 20220822, end: 20221016
  13. KREMEZIN [Concomitant]
     Active Substance: ACTIVATED CHARCOAL
     Indication: Renal disorder
     Dosage: 500 MG, BID
     Route: 048
     Dates: start: 20220905, end: 20221016

REACTIONS (2)
  - Renal failure [Fatal]
  - Respiratory arrest [Fatal]

NARRATIVE: CASE EVENT DATE: 20220101
